FAERS Safety Report 5861651-0 (Version None)
Quarter: 2008Q3

REPORT INFORMATION
  Report Type: 
  Country: None (occurrence: None)
  Receive Date: 20080827
  Receipt Date: 20080625
  Transmission Date: 20090109
  Serious: No
  Sender: FDA-Public Use
  Company Number: US-ABBOTT-08P-163-0456417-00

PATIENT
  Sex: Male
  Weight: 104.42 kg

DRUGS (10)
  1. NIASPAN [Suspect]
     Indication: BLOOD CHOLESTEROL INCREASED
     Dosage: 1500 MG AT BEDTIME
     Route: 048
     Dates: start: 20030101, end: 20040101
  2. NIASPAN [Suspect]
     Dosage: 1500 MG AT BEDTIME
     Route: 048
     Dates: end: 20050101
  3. NIASPAN [Suspect]
     Dosage: NIASPAN COATED 1500 MG AT BEDTIME
     Route: 048
     Dates: start: 20050101
  4. ZOLEDRONIC ACID [Concomitant]
     Indication: MULTIPLE MYELOMA
     Route: 042
     Dates: start: 20030101
  5. EXTRA STRENGTH ASPIRIN [Concomitant]
     Indication: PROPHYLAXIS
     Route: 048
  6. EXTRA STRENGTH ASPIRIN [Concomitant]
     Indication: FLUSHING
  7. EZETIMIBE [Concomitant]
     Indication: BLOOD CHOLESTEROL INCREASED
     Route: 048
     Dates: start: 20040101
  8. WARFARIN SODIUM [Concomitant]
     Indication: CENTRAL VENOUS CATHETERISATION
     Dosage: 5 MG, 4 DAYS/WEEK,  2.5 MG, 3 DAY/WEEK
     Route: 048
     Dates: start: 20070101
  9. VALACYCLOVIR [Concomitant]
     Indication: HEADACHE
     Route: 048
     Dates: start: 20050101
  10. GLUCOSOMINE COGENTIN [Concomitant]
     Indication: HIP DEFORMITY
     Route: 048

REACTIONS (2)
  - FLUSHING [None]
  - MONOCLONAL IMMUNOGLOBULIN PRESENT [None]
